FAERS Safety Report 15244099 (Version 1)
Quarter: 2018Q3

REPORT INFORMATION
  Report Type: Spontaneous
  Country: CN (occurrence: CN)
  Receive Date: 20180806
  Receipt Date: 20180806
  Transmission Date: 20181010
  Serious: Yes (Other)
  Sender: FDA-Public Use
  Company Number: CN-PFIZER INC-2018309437

PATIENT
  Age: 8 Year
  Sex: Male
  Weight: 23 kg

DRUGS (3)
  1. OMEPRAZOLE. [Concomitant]
     Active Substance: OMEPRAZOLE
  2. DESLORATADINE. [Concomitant]
     Active Substance: DESLORATADINE
     Indication: HYPERSENSITIVITY
  3. METHYLPREDNISOLONE SODIUM SUCCINATE. [Suspect]
     Active Substance: METHYLPREDNISOLONE SODIUM SUCCINATE
     Indication: INFLAMMATION
     Dosage: 25 MG, 2X/DAY
     Route: 041
     Dates: start: 20180515, end: 20180522

REACTIONS (2)
  - Abdominal pain [Unknown]
  - Haematochezia [Recovering/Resolving]

NARRATIVE: CASE EVENT DATE: 20180515
